FAERS Safety Report 8349566-X (Version None)
Quarter: 2012Q2

REPORT INFORMATION
  Report Type: 
  Country: None (occurrence: None)
  Receive Date: 20120510
  Receipt Date: 20120504
  Transmission Date: 20120825
  Serious: Yes (Life-Threatening, Hospitalization)
  Sender: FDA-Public Use
  Company Number: US-BAYER-2012-020903

PATIENT
  Age: 45 Year
  Sex: Female
  Weight: 81.633 kg

DRUGS (8)
  1. CELEBREX [Concomitant]
     Dosage: 200 MG, UNK
  2. TAMIFLU [Concomitant]
     Dosage: 75 MG, UNK
  3. METHYLPREDNISOLONE [Concomitant]
     Dosage: 4 MG DOSEPAK
  4. YAZ [Suspect]
  5. ROBAXIN [Concomitant]
  6. SINGULAIR [Concomitant]
     Indication: SEASONAL ALLERGY
     Dosage: 10 MG, UNK
  7. CEFUROXIME [Concomitant]
     Dosage: 500 MG, UNK
  8. YASMIN [Suspect]

REACTIONS (6)
  - EMOTIONAL DISTRESS [None]
  - ANHEDONIA [None]
  - ANXIETY [None]
  - DEEP VEIN THROMBOSIS [None]
  - PAIN [None]
  - FEAR [None]
